FAERS Safety Report 9209797 (Version 1)
Quarter: 2013Q1

REPORT INFORMATION
  Report Type: Spontaneous
  Country: US (occurrence: None)
  Receive Date: 20120820
  Receipt Date: 20120820
  Transmission Date: 20140127
  Serious: No
  Sender: FDA-Public Use
  Company Number: 1000030628

PATIENT
  Age: 55 Year
  Sex: Female

DRUGS (5)
  1. VIIBRYD [Suspect]
     Indication: ASTHENIA
     Route: 048
     Dates: start: 201204, end: 201205
  2. VIIBRYD [Suspect]
     Indication: SLUGGISHNESS
     Route: 048
     Dates: start: 201204, end: 201205
  3. VIIBRYD [Suspect]
     Indication: ASTHENIA
     Route: 048
     Dates: start: 20120518
  4. VIIBRYD [Suspect]
     Indication: SLUGGISHNESS
     Route: 048
     Dates: start: 20120518
  5. METHADONE (METHADONE) (METHADONE) [Concomitant]

REACTIONS (3)
  - Depressed mood [None]
  - Abdominal pain [None]
  - Off label use [None]
